FAERS Safety Report 18152357 (Version 4)
Quarter: 2020Q3

REPORT INFORMATION
  Report Type: Spontaneous
  Country: ES (occurrence: ES)
  Receive Date: 20200814
  Receipt Date: 20200925
  Transmission Date: 20201103
  Serious: Yes (Hospitalization, Other)
  Sender: FDA-Public Use
  Company Number: ES-EMD SERONO-9179333

PATIENT
  Age: 30 Year
  Sex: Female

DRUGS (2)
  1. MAVENCLAD [Suspect]
     Active Substance: CLADRIBINE
     Indication: MULTIPLE SCLEROSIS
     Dosage: FIRST CYCLE THERAPY
     Dates: start: 20200706
  2. MAVENCLAD [Suspect]
     Active Substance: CLADRIBINE
     Dosage: SECOND CYCLE THERAPY: DISCONTINUED ON 05 AUG 2020
     Dates: start: 202008, end: 202008

REACTIONS (9)
  - Multiple sclerosis relapse [Recovering/Resolving]
  - Hemiplegia [Recovering/Resolving]
  - Facial paralysis [Recovering/Resolving]
  - Hemianopia [Recovering/Resolving]
  - Pupils unequal [Recovering/Resolving]
  - Brain oedema [Recovering/Resolving]
  - Neurological symptom [Recovering/Resolving]
  - Central nervous system lesion [Recovering/Resolving]
  - Expanded disability status scale score increased [Recovering/Resolving]

NARRATIVE: CASE EVENT DATE: 202007
